FAERS Safety Report 9296197 (Version 3)
Quarter: 2014Q1

REPORT INFORMATION
  Report Type: Report from Study
  Country: IT (occurrence: IT)
  Receive Date: 20130517
  Receipt Date: 20140123
  Transmission Date: 20141002
  Serious: Yes (Hospitalization)
  Sender: FDA-Public Use
  Company Number: IT-ACTELION-A-CH2013-83077

PATIENT
  Age: 40 Year
  Sex: Female
  Weight: 45 kg

DRUGS (4)
  1. TRACLEER [Suspect]
     Indication: SKIN ULCER
     Dosage: 62.5 MG, BID
     Route: 048
     Dates: start: 20080116, end: 20130415
  2. TRACLEER [Suspect]
     Dosage: UNK
     Route: 048
  3. ADALAT A.P. [Concomitant]
     Dosage: UNK
     Dates: start: 20060530
  4. LANSOX [Concomitant]
     Dosage: UNK
     Dates: start: 20060530

REACTIONS (2)
  - Caesarean section [Recovered/Resolved]
  - Pregnancy [Recovered/Resolved]
